FAERS Safety Report 8548049-1 (Version None)
Quarter: 2012Q3

REPORT INFORMATION
  Report Type: 
  Country: None (occurrence: None)
  Receive Date: 20120730
  Receipt Date: 20120724
  Transmission Date: 20120928
  Serious: Yes (Disabling)
  Sender: FDA-Public Use
  Company Number: US-ROCHE-1084974

PATIENT
  Sex: Male
  Weight: 83.99 kg

DRUGS (3)
  1. OMALIZUMAB [Suspect]
     Indication: ASTHMA
     Route: 058
     Dates: start: 20111201
  2. ALBUTEROL [Concomitant]
  3. COMBIVENT [Concomitant]

REACTIONS (1)
  - LUNG INFECTION [None]
